FAERS Safety Report 8922955 (Version 1)
Quarter: 2012Q4

REPORT INFORMATION
  Report Type: Spontaneous
  Country: US (occurrence: None)
  Receive Date: 20121115
  Receipt Date: 20121115
  Transmission Date: 20130627
  Serious: Yes (Disabling)
  Sender: FDA-Public Use
  Company Number: None

PATIENT
  Age: 49 Year
  Sex: Female
  Weight: 49.9 kg

DRUGS (1)
  1. BOTOX [Suspect]
     Indication: GASTROPARESIS

REACTIONS (7)
  - Asthenia [None]
  - Abasia [None]
  - Muscle spasms [None]
  - Weight bearing difficulty [None]
  - Wheelchair user [None]
  - Dyspnoea [None]
  - Movement disorder [None]
